FAERS Safety Report 10574425 (Version 1)
Quarter: 2014Q4

REPORT INFORMATION
  Report Type: Spontaneous
  Country: US (occurrence: US)
  Receive Date: 20141110
  Receipt Date: 20141110
  Transmission Date: 20150529
  Serious: No
  Sender: FDA-Public Use
  Company Number: US-BAYER-2014-166341

PATIENT
  Sex: Female

DRUGS (1)
  1. CLIMARA [Suspect]
     Active Substance: ESTRADIOL
     Dosage: UNK
     Route: 062
     Dates: start: 2011

REACTIONS (4)
  - Application site erythema [None]
  - Product adhesion issue [None]
  - Application site pruritus [None]
  - Application site irritation [None]

NARRATIVE: CASE EVENT DATE: 2014
